FAERS Safety Report 8171641-3 (Version None)
Quarter: 2012Q1

REPORT INFORMATION
  Report Type: 
  Country: None (occurrence: None)
  Receive Date: 20120228
  Receipt Date: 20120216
  Transmission Date: 20120608
  Serious: No
  Sender: FDA-Public Use
  Company Number: US-BAYER-2012-016527

PATIENT
  Age: 55 Year
  Sex: Male
  Weight: 73 kg

DRUGS (1)
  1. ALEVE (CAPLET) [Suspect]
     Indication: CHEST PAIN
     Dosage: 1 DF, BID
     Route: 048
     Dates: start: 20110601, end: 20120101

REACTIONS (3)
  - CHEST PAIN [None]
  - DIZZINESS [None]
  - HEADACHE [None]
